FAERS Safety Report 13748813 (Version 1)
Quarter: 2017Q3

REPORT INFORMATION
  Report Type: Spontaneous
  Country: US (occurrence: US)
  Receive Date: 20170712
  Receipt Date: 20170712
  Transmission Date: 20171127
  Serious: Yes (Other)
  Sender: FDA-Public Use
  Company Number: None

PATIENT
  Age: 56 Year
  Sex: Female
  Weight: 66.2 kg

DRUGS (8)
  1. LACTULOSE. [Concomitant]
     Active Substance: LACTULOSE
  2. VANCOMYCIN 5G/100ML [Suspect]
     Active Substance: VANCOMYCIN
     Indication: OSTEOMYELITIS
     Dosage: ?          OTHER DOSE:MG;?
     Route: 041
     Dates: start: 20170629, end: 20170710
  3. PROPRANOLOL [Concomitant]
     Active Substance: PROPRANOLOL HYDROCHLORIDE
  4. FOLIC ACID. [Concomitant]
     Active Substance: FOLIC ACID
  5. BACITRACIN TOPICAL [Concomitant]
  6. MULTIVITAMIN [Concomitant]
     Active Substance: VITAMINS
  7. LEVETIRACETAM. [Concomitant]
     Active Substance: LEVETIRACETAM
  8. OXYCODONE [Concomitant]
     Active Substance: OXYCODONE

REACTIONS (3)
  - Platelet count decreased [None]
  - Neutropenia [None]
  - White blood cell count decreased [None]

NARRATIVE: CASE EVENT DATE: 20170708
